FAERS Safety Report 16163229 (Version 1)
Quarter: 2019Q2

REPORT INFORMATION
  Report Type: Spontaneous
  Country: RO (occurrence: RO)
  Receive Date: 20190405
  Receipt Date: 20190405
  Transmission Date: 20190711
  Serious: Yes (Life-Threatening, Hospitalization)
  Sender: FDA-Public Use
  Company Number: RO-009507513-1903ROM012096

PATIENT
  Age: 57 Year
  Sex: Male
  Weight: 101 kg

DRUGS (1)
  1. ZEPATIER [Suspect]
     Active Substance: ELBASVIR\GRAZOPREVIR
     Indication: CHRONIC HEPATITIS C
     Dosage: 50 MG/100 MG PER DAY
     Route: 048
     Dates: start: 20180904, end: 20190104

REACTIONS (2)
  - Anaemia [Not Recovered/Not Resolved]
  - Red blood cell count [Not Recovered/Not Resolved]

NARRATIVE: CASE EVENT DATE: 20190107
